FAERS Safety Report 5587751-0 (Version None)
Quarter: 2007Q4

REPORT INFORMATION
  Report Type: 
  Country: None (occurrence: None)
  Receive Date: 20071207
  Receipt Date: 20070917
  Transmission Date: 20080405
  Serious: Yes (Life-Threatening, Other)
  Sender: FDA-Public Use
  Company Number: 40938

PATIENT
  Age: 83 Year
  Sex: Male

DRUGS (10)
  1. AMIODARONE HCL [Suspect]
     Indication: ATRIAL FIBRILLATION
     Dosage: 150MG/X1/IV BOLUS
     Route: 040
     Dates: start: 20070916
  2. LIPITOR [Concomitant]
  3. SYNTHROID [Concomitant]
  4. DIGOXIN [Concomitant]
  5. POTASSIUM CHLORIDE [Concomitant]
  6. PRILOSEC [Concomitant]
  7. PAXIL [Concomitant]
  8. COREG [Concomitant]
  9. AVELOX [Concomitant]
  10. SOLU-MEDROL [Concomitant]

REACTIONS (1)
  - ANAPHYLACTIC REACTION [None]
